FAERS Safety Report 16757215 (Version 1)
Quarter: 2019Q3

REPORT INFORMATION
  Report Type: Spontaneous
  Country: US (occurrence: US)
  Receive Date: 20190829
  Receipt Date: 20190829
  Transmission Date: 20191005
  Serious: No
  Sender: FDA-Public Use
  Company Number: US-TOLMAR, INC.-TOLG20192376

PATIENT
  Age: 66 Year
  Sex: Female

DRUGS (1)
  1. CALCIPOTRIENE AND BETAMETHASONE DIPROPIONATE [Suspect]
     Active Substance: BETAMETHASONE DIPROPIONATE\CALCIPOTRIENE
     Indication: PSORIASIS
     Dosage: UNKNOWN
     Route: 061
     Dates: start: 20190825

REACTIONS (4)
  - Genital burning sensation [Not Recovered/Not Resolved]
  - Pruritus genital [Not Recovered/Not Resolved]
  - Product prescribing error [None]
  - Incorrect route of product administration [None]

NARRATIVE: CASE EVENT DATE: 201908
